FAERS Safety Report 23171565 (Version 2)
Quarter: 2023Q4

REPORT INFORMATION
  Report Type: Report from Study
  Country: JP (occurrence: JP)
  Receive Date: 20231110
  Receipt Date: 20231115
  Transmission Date: 20240109
  Serious: No
  Sender: FDA-Public Use
  Company Number: JP-ALXN-A202210599

PATIENT
  Age: 41 Year
  Sex: Female
  Weight: 55.8 kg

DRUGS (13)
  1. STRENSIQ [Suspect]
     Active Substance: ASFOTASE ALFA
     Indication: Hypophosphatasia
     Dosage: 2 MG/KG, TIW
     Route: 058
     Dates: start: 20201218, end: 20201224
  2. STRENSIQ [Suspect]
     Active Substance: ASFOTASE ALFA
     Dosage: 0.5 MILLIGRAM/KILOGRAM, SIX TIMES/WEEK
     Route: 058
     Dates: end: 20210112
  3. STRENSIQ [Suspect]
     Active Substance: ASFOTASE ALFA
     Dosage: 0.7 MILLIGRAM/KILOGRAM, SIX TIMES/WEEK
     Route: 058
     Dates: end: 20210627
  4. STRENSIQ [Suspect]
     Active Substance: ASFOTASE ALFA
     Dosage: 0.7 MILLIGRAM/KILOGRAM, QIW
     Route: 058
     Dates: end: 20210914
  5. STRENSIQ [Suspect]
     Active Substance: ASFOTASE ALFA
     Dosage: 0.7 MILLIGRAM/KILOGRAM, SIX TIMES/WEEK
     Route: 058
  6. CALONAL [Concomitant]
     Active Substance: ACETAMINOPHEN
     Indication: Pain
     Dosage: 600 MG, PRN
     Route: 065
     Dates: start: 20201128, end: 20201218
  7. CALONAL [Concomitant]
     Active Substance: ACETAMINOPHEN
     Dosage: 600 MG, QID
     Route: 065
     Dates: start: 20201128
  8. CALONAL [Concomitant]
     Active Substance: ACETAMINOPHEN
     Dosage: 600 MG, TID
     Route: 048
     Dates: start: 20201128
  9. NAIXAN                             /00256201/ [Concomitant]
     Indication: Pain
     Dosage: 100 MG, TID
     Route: 048
     Dates: start: 20201128
  10. NEXIUM [Concomitant]
     Active Substance: ESOMEPRAZOLE MAGNESIUM
     Indication: Prophylaxis against gastrointestinal ulcer
     Dosage: 20 MG, QD
     Route: 048
     Dates: start: 20201128
  11. LUNESTA [Concomitant]
     Active Substance: ESZOPICLONE
     Indication: Pain
     Dosage: 1 MG, QHS
     Route: 048
     Dates: start: 20201128
  12. ZOPICLONE [Concomitant]
     Active Substance: ZOPICLONE
     Indication: Product used for unknown indication
     Dosage: 7.5 MG, QHS
     Route: 048
  13. HYALURONATE SODIUM [Concomitant]
     Active Substance: HYALURONATE SODIUM
     Indication: Product used for unknown indication
     Dosage: UNK, QID
     Route: 047

REACTIONS (4)
  - Lip oedema [Unknown]
  - Administration related reaction [Recovered/Resolved]
  - Injection site erythema [Recovering/Resolving]
  - Injection site reaction [Recovered/Resolved]

NARRATIVE: CASE EVENT DATE: 20201224
